FAERS Safety Report 8355026-2 (Version None)
Quarter: 2012Q2

REPORT INFORMATION
  Report Type: 
  Country: None (occurrence: None)
  Receive Date: 20120511
  Receipt Date: 20120509
  Transmission Date: 20120825
  Serious: No
  Sender: FDA-Public Use
  Company Number: US-B.I. PHARMACEUTICALS,INC./RIDGEFIELD-2012-BP-10505BP

PATIENT
  Age: 65 Year
  Sex: Male

DRUGS (3)
  1. TRADJENTA [Suspect]
     Indication: TYPE 2 DIABETES MELLITUS
  2. METFORMIN HCL [Concomitant]
  3. TRADJENTA [Suspect]
     Indication: GLYCOSYLATED HAEMOGLOBIN INCREASED
     Dates: start: 20111101

REACTIONS (1)
  - DIZZINESS [None]
